FAERS Safety Report 23805224 (Version 3)
Quarter: 2024Q2

REPORT INFORMATION
  Report Type: Spontaneous
  Country: US (occurrence: US)
  Receive Date: 20240502
  Receipt Date: 20240614
  Transmission Date: 20240715
  Serious: No
  Sender: FDA-Public Use
  Company Number: US-TEVA-VS-3168459

PATIENT
  Age: 55 Year
  Sex: Male

DRUGS (1)
  1. ACTIQ [Suspect]
     Active Substance: FENTANYL CITRATE
     Indication: Migraine
     Dosage: 200 MCG
     Route: 065
     Dates: start: 2016

REACTIONS (11)
  - Depression [Unknown]
  - Initial insomnia [Recovered/Resolved]
  - Tooth erosion [Unknown]
  - Tooth ankylosis [Not Recovered/Not Resolved]
  - Overdose [Unknown]
  - Pain [Unknown]
  - Somnolence [Unknown]
  - Tooth injury [Unknown]
  - Product prescribing error [Unknown]
  - Fracture [Unknown]
  - Dental caries [Unknown]

NARRATIVE: CASE EVENT DATE: 20030101
